FAERS Safety Report 25844367 (Version 3)
Quarter: 2025Q4

REPORT INFORMATION
  Report Type: Spontaneous
  Country: EU (occurrence: EU)
  Receive Date: 20250925
  Receipt Date: 20251030
  Transmission Date: 20260117
  Serious: Yes (Death, Hospitalization, Other)
  Sender: SANDOZ
  Company Number: EU-CHEPLA-2025010633

PATIENT
  Age: 7 Decade

DRUGS (14)
  1. BUSULFAN [Suspect]
     Active Substance: BUSULFAN
     Indication: Prophylaxis against graft versus host disease
     Dosage: UNK, DAY 5 TO DAY 3
     Route: 065
  2. FLUDARABINE [Suspect]
     Active Substance: FLUDARABINE PHOSPHATE
     Indication: Prophylaxis against graft versus host disease
     Dosage: UNK, 6 TO 2 DAYS BEFORE HSCT (DAY -6 TO DAY -2)
     Route: 065
  3. FOSCARNET [Suspect]
     Active Substance: FOSCARNET
     Indication: Prophylaxis against graft versus host disease
     Dosage: 90 MG/KG, BID (0.5 DAY), 98 TO 157; TWICE A DAY
     Route: 065
  4. GANCICLOVIR [Suspect]
     Active Substance: GANCICLOVIR
     Indication: Cytomegalovirus infection reactivation
     Dosage: 5 MG/KG, BID (0.5 DAY), DAY +52 TO52 TO 69 TWICE A DAY 0.5 DAY
     Route: 065
  5. GANCICLOVIR [Suspect]
     Active Substance: GANCICLOVIR
     Dosage: 5 MG/KG, 261 TO 280
     Route: 065
  6. GRAFALON [Suspect]
     Active Substance: LAPINE T-LYMPHOCYTE IMMUNE GLOBULIN
     Indication: Prophylaxis against graft versus host disease
     Dosage: UNK, DAY -2 TO DAY -1
     Route: 065
  7. GRAFALON [Suspect]
     Active Substance: LAPINE T-LYMPHOCYTE IMMUNE GLOBULIN
     Indication: Allogenic stem cell transplantation
  8. MYCOPHENOLATE MOFETIL [Suspect]
     Active Substance: MYCOPHENOLATE MOFETIL
     Dosage: 2 MG/KG, QD, WAS INCREASED TO 2 MG/KG/DAY
     Route: 042
  9. MYCOPHENOLATE MOFETIL [Suspect]
     Active Substance: MYCOPHENOLATE MOFETIL
     Indication: Prophylaxis against graft versus host disease
     Dosage: UNK
     Route: 048
  10. METHYLPREDNISOLONE [Suspect]
     Active Substance: METHYLPREDNISOLONE
     Dosage: 2 MG/KG, QD, INCREASED TO 2 MG/ KG/DAY
     Route: 042
  11. METHYLPREDNISOLONE [Suspect]
     Active Substance: METHYLPREDNISOLONE
     Indication: Prophylaxis against graft versus host disease
     Dosage: UNK, DAY 43
     Route: 048
  12. TACROLIMUS [Suspect]
     Active Substance: TACROLIMUS
     Indication: Prophylaxis against graft versus host disease
     Dosage: UNK
     Route: 065
  13. VALGANCICLOVIR [Suspect]
     Active Substance: VALGANCICLOVIR
     Indication: Cytomegalovirus colitis
     Dosage: 450 MG, BID (0.5 DAY), 165 TO 261; TWICE A DAY,0.5 DAY
     Route: 065
  14. MARIBAVIR [Concomitant]
     Active Substance: MARIBAVIR
     Indication: Product used for unknown indication
     Dosage: 400 MG, BID, 69-98 DAY; TWICE A DAY
     Route: 065

REACTIONS (12)
  - Pulmonary tuberculosis [Fatal]
  - Acute respiratory distress syndrome [Unknown]
  - Graft versus host disease [Unknown]
  - Bacterial infection [Unknown]
  - Fungal infection [Unknown]
  - Bacteraemia [Unknown]
  - Beta haemolytic streptococcal infection [Unknown]
  - Epstein-Barr virus infection [Unknown]
  - Cytomegalovirus infection reactivation [Unknown]
  - Viral infection [Unknown]
  - Drug resistance [Unknown]
  - Off label use [Unknown]
